FAERS Safety Report 6206978-8 (Version None)
Quarter: 2009Q2

REPORT INFORMATION
  Report Type: 
  Country: None (occurrence: None)
  Receive Date: 20090528
  Receipt Date: 20090527
  Transmission Date: 20091009
  Serious: Yes (Hospitalization)
  Sender: FDA-Public Use
  Company Number: B0575961A

PATIENT
  Sex: Male

DRUGS (3)
  1. ALKERAN [Suspect]
     Indication: AMYLOIDOSIS
     Dosage: 14.58MG PER DAY
     Route: 048
     Dates: start: 20080904, end: 20080908
  2. REVLIMID [Suspect]
     Indication: AMYLOIDOSIS
     Dosage: 10MG PER DAY
     Route: 048
     Dates: start: 20080904, end: 20080925
  3. DEXAMETHASONE 4MG TAB [Suspect]
     Indication: AMYLOIDOSIS
     Dosage: 20MG PER DAY
     Route: 048
     Dates: start: 20080904, end: 20080908

REACTIONS (2)
  - AGRANULOCYTOSIS [None]
  - PANCYTOPENIA [None]
